FAERS Safety Report 10343566 (Version 2)
Quarter: 2014Q3

REPORT INFORMATION
  Report Type: Spontaneous
  Country: US (occurrence: US)
  Receive Date: 20140725
  Receipt Date: 20140725
  Transmission Date: 20150326
  Serious: Yes (Hospitalization)
  Sender: FDA-Public Use
  Company Number: US-GLAXOSMITHKLINE-A0915934A

PATIENT
  Age: 52 Year
  Weight: 111.4 kg

DRUGS (1)
  1. AVANDIA [Suspect]
     Active Substance: ROSIGLITAZONE MALEATE
     Indication: DIABETES MELLITUS
     Dosage: 4MG PER DAY
     Route: 048
     Dates: start: 200201, end: 200705

REACTIONS (5)
  - Visual impairment [Unknown]
  - Ischaemic stroke [Unknown]
  - Transient ischaemic attack [Unknown]
  - Hypertensive encephalopathy [Unknown]
  - Amnesia [Unknown]

NARRATIVE: CASE EVENT DATE: 200712
